FAERS Safety Report 20003864 (Version 1)
Quarter: 2021Q4

REPORT INFORMATION
  Report Type: Spontaneous
  Country: US (occurrence: US)
  Receive Date: 20211028
  Receipt Date: 20211028
  Transmission Date: 20220303
  Serious: No
  Sender: FDA-Public Use
  Company Number: US-DRREDDYS-SPO/USA/21/0142921

PATIENT
  Age: 18 Year
  Sex: Male

DRUGS (1)
  1. ACCUTANE [Suspect]
     Active Substance: ISOTRETINOIN
     Indication: Product used for unknown indication
     Dosage: RMA ISSUE DATE: 13APRIL2021 12:00:00 AM,17MAY2021 12:00:00 AM,17JUNE2021 12:00:00 AM,19JULY2021 12:0

REACTIONS (2)
  - Drug ineffective [Unknown]
  - Product quality issue [Unknown]
